FAERS Safety Report 9381274 (Version 7)
Quarter: 2013Q4

REPORT INFORMATION
  Report Type: Spontaneous
  Country: US (occurrence: US)
  Receive Date: 20130703
  Receipt Date: 20131212
  Transmission Date: 20140711
  Serious: Yes (Other)
  Sender: FDA-Public Use
  Company Number: US-PFIZER INC-2013194011

PATIENT
  Age: 62 Year
  Sex: Female
  Weight: 73.47 kg

DRUGS (10)
  1. SUTENT [Suspect]
     Indication: METASTATIC RENAL CELL CARCINOMA
     Dosage: 50 MG, 1X/DAY (CYCLIC)
     Route: 048
     Dates: start: 201306, end: 20131007
  2. DEXAMETHASONE [Concomitant]
     Dosage: UNK
     Dates: start: 20130701
  3. NYSTATIN [Concomitant]
     Dosage: UNK
  4. LIDOCAINE [Concomitant]
     Dosage: UNK
  5. ZOMETA [Concomitant]
     Dosage: UNK
  6. BIOTENE MOUTHWASH [Concomitant]
     Dosage: UNK
  7. TYLENOL [Concomitant]
     Dosage: UNK
  8. TRAMADOL [Concomitant]
     Dosage: UNK, AS NEEDED
     Dates: start: 20130613
  9. ZOFRAN [Concomitant]
     Indication: NAUSEA
     Dosage: 8MG Q8 H AS NEEDED
     Dates: start: 20130627
  10. XGEVA [Concomitant]

REACTIONS (44)
  - Rectal haemorrhage [Unknown]
  - Leukopenia [Recovering/Resolving]
  - Disease progression [Unknown]
  - Metastatic renal cell carcinoma [Unknown]
  - Chills [Unknown]
  - Back pain [Unknown]
  - Dysgeusia [Unknown]
  - Decreased appetite [Unknown]
  - Oral pain [Recovering/Resolving]
  - Oral candidiasis [Recovered/Resolved]
  - Stomatitis [Recovered/Resolved]
  - Glossodynia [Unknown]
  - Fatigue [Unknown]
  - Nausea [Not Recovered/Not Resolved]
  - Pruritus [Unknown]
  - Dry skin [Unknown]
  - White blood cell count decreased [Unknown]
  - Platelet count decreased [Unknown]
  - Dizziness [Unknown]
  - Sleep disorder [Unknown]
  - Procedural pain [Unknown]
  - Inflammation [Unknown]
  - Thrombocytopenia [Recovering/Resolving]
  - Pain of skin [Unknown]
  - Face oedema [Unknown]
  - Eyelid oedema [Unknown]
  - Eyelid pain [Unknown]
  - Skin exfoliation [Unknown]
  - Skin fissures [Unknown]
  - Rash macular [Unknown]
  - Skin discolouration [Unknown]
  - Erythema [Unknown]
  - Vision blurred [Unknown]
  - Headache [Unknown]
  - Sinusitis [Unknown]
  - Diarrhoea [Unknown]
  - Anorectal discomfort [Recovering/Resolving]
  - Palmar-plantar erythrodysaesthesia syndrome [Unknown]
  - Red blood cell count decreased [Unknown]
  - Haematocrit decreased [Unknown]
  - Haemoglobin decreased [Unknown]
  - Oedema peripheral [Unknown]
  - Skin disorder [Unknown]
  - Neutrophil count decreased [Unknown]
